FAERS Safety Report 10989356 (Version 4)
Quarter: 2016Q1

REPORT INFORMATION
  Report Type: Spontaneous
  Country: US (occurrence: US)
  Receive Date: 20150406
  Receipt Date: 20160308
  Transmission Date: 20160525
  Serious: Yes (Other)
  Sender: FDA-Public Use
  Company Number: US-PFIZER INC-2015112347

PATIENT
  Age: 80 Year
  Sex: Female
  Weight: 77 kg

DRUGS (11)
  1. AMLODIPINE [Concomitant]
     Active Substance: AMLODIPINE BESYLATE
     Indication: BLOOD PRESSURE ABNORMAL
     Dosage: 2.5 MG, 1X/DAY (AT NIGHT)
     Route: 048
     Dates: start: 201407
  2. IPRATROPIUM BROMIDE. [Concomitant]
     Active Substance: IPRATROPIUM BROMIDE
     Indication: ASTHMA
  3. ATROVENT [Concomitant]
     Active Substance: IPRATROPIUM BROMIDE
     Indication: ASTHMA
  4. LIBRAX [Concomitant]
     Active Substance: CHLORDIAZEPOXIDE HYDROCHLORIDE\CLIDINIUM BROMIDE
     Indication: IRRITABLE BOWEL SYNDROME
     Dosage: 1 CAPSULE, AS NEEDED
     Route: 048
  5. XGEVA [Concomitant]
     Active Substance: DENOSUMAB
     Indication: BREAST CANCER METASTATIC
     Dosage: 1 DF, MONTHLY
     Route: 030
  6. AROMASIN [Suspect]
     Active Substance: EXEMESTANE
     Dosage: UNK, ^25-10^
     Route: 048
     Dates: start: 20150325
  7. IPRATROPIUM BROMIDE. [Concomitant]
     Active Substance: IPRATROPIUM BROMIDE
     Indication: BRONCHITIS CHRONIC
     Dosage: 1 DF, 2X/DAY (USED IN NEBULIZER TWO TREATMENTS DAILY, ONE IN THE MORNING AND ONE IN THE EVENING)
  8. NORVASC [Concomitant]
     Active Substance: AMLODIPINE BESYLATE
     Dosage: UNK
  9. AROMASIN [Suspect]
     Active Substance: EXEMESTANE
     Indication: BREAST CANCER METASTATIC
     Dosage: 25 MG, 1X/DAY
     Route: 048
     Dates: start: 2012, end: 20150317
  10. ATENOLOL. [Concomitant]
     Active Substance: ATENOLOL
     Indication: HYPERTENSION
     Dosage: 100 MG, 2X/DAY (IN THE MORNING AND AT NIGHT)
     Route: 048
  11. ATROVENT [Concomitant]
     Active Substance: IPRATROPIUM BROMIDE
     Indication: BRONCHITIS CHRONIC
     Dosage: TWO PUFFS AS NEEDED
     Route: 055

REACTIONS (9)
  - Blood pressure increased [Unknown]
  - Insomnia [Unknown]
  - Lung infection [Unknown]
  - Drug dose omission [Recovered/Resolved]
  - Photopsia [Unknown]
  - Asthma [Unknown]
  - Condition aggravated [Unknown]
  - Migraine with aura [Unknown]
  - Fatigue [Unknown]

NARRATIVE: CASE EVENT DATE: 201503
